FAERS Safety Report 19349971 (Version 1)
Quarter: 2021Q2

REPORT INFORMATION
  Report Type: Spontaneous
  Country: US (occurrence: US)
  Receive Date: 20210601
  Receipt Date: 20210601
  Transmission Date: 20210717
  Serious: Yes (Hospitalization)
  Sender: FDA-Public Use
  Company Number: None

PATIENT
  Age: 82 Year
  Sex: Male
  Weight: 56.25 kg

DRUGS (9)
  1. MELOXICAM 7.5MG [Concomitant]
     Active Substance: MELOXICAM
  2. EXELON 4.6MG/24HRS [Concomitant]
  3. HYDROCODONE/ACETAMINOPHEN 5?325MG [Concomitant]
  4. PREDNISONE 5MG [Concomitant]
     Active Substance: PREDNISONE
  5. EPIPEN 0.3MG/0.3ML [Concomitant]
  6. ABIRATERONE. [Suspect]
     Active Substance: ABIRATERONE ACETATE
     Indication: PROSTATE CANCER
     Route: 048
     Dates: start: 20210414, end: 20210601
  7. OMEPRAZOLE 20MG [Concomitant]
     Active Substance: OMEPRAZOLE
  8. TAMSULOSIN 0.4MG [Concomitant]
     Active Substance: TAMSULOSIN
  9. COENZYME Q?10  100MG [Concomitant]

REACTIONS (1)
  - Hospitalisation [None]

NARRATIVE: CASE EVENT DATE: 20210601
